FAERS Safety Report 12254988 (Version 4)
Quarter: 2016Q2

REPORT INFORMATION
  Report Type: Report from Study
  Country: IL (occurrence: IL)
  Receive Date: 20160411
  Receipt Date: 20160527
  Transmission Date: 20160815
  Serious: Yes (Hospitalization)
  Sender: FDA-Public Use
  Company Number: IL-ABBVIE-16P-082-1600967-00

PATIENT
  Sex: Female

DRUGS (2)
  1. EXVIERA [Suspect]
     Active Substance: DASABUVIR
     Indication: HEPATITIS C
     Route: 048
     Dates: start: 20160203
  2. VIEKIRAX [Suspect]
     Active Substance: OMBITASVIR\PARITAPREVIR\RITONAVIR
     Indication: HEPATITIS C
     Route: 048
     Dates: start: 20160203

REACTIONS (7)
  - Abdominal pain [Unknown]
  - Blood test abnormal [Unknown]
  - Nausea [Unknown]
  - Nephrolithiasis [Unknown]
  - Asthenia [Unknown]
  - Pyrexia [Unknown]
  - Feeling abnormal [Not Recovered/Not Resolved]
